FAERS Safety Report 7811583-3 (Version None)
Quarter: 2011Q4

REPORT INFORMATION
  Report Type: 
  Country: None (occurrence: None)
  Receive Date: 20111013
  Receipt Date: 20111004
  Transmission Date: 20120403
  Serious: Yes (Other)
  Sender: FDA-Public Use
  Company Number: US-ASTRAZENECA-2011SE56768

PATIENT
  Age: 59 Year
  Sex: Male

DRUGS (3)
  1. CRESTOR [Suspect]
     Route: 048
  2. LIPITOR [Concomitant]
  3. TRILIPIX [Concomitant]

REACTIONS (4)
  - NIGHTMARE [None]
  - HYPERTENSION [None]
  - DRUG DOSE OMISSION [None]
  - POST-TRAUMATIC STRESS DISORDER [None]
